FAERS Safety Report 8342246-6 (Version None)
Quarter: 2012Q2

REPORT INFORMATION
  Report Type: 
  Country: None (occurrence: None)
  Receive Date: 20120507
  Receipt Date: 20120425
  Transmission Date: 20120825
  Serious: Yes (Hospitalization, Other)
  Sender: FDA-Public Use
  Company Number: US-AMGEN-USASP2011054679

PATIENT
  Age: 84 Year
  Sex: Male

DRUGS (2)
  1. XGEVA [Suspect]
     Indication: METASTASES TO BONE
     Dosage: 120 MG, UNK
     Route: 058
  2. LEUPROLIDE ACETATE [Concomitant]
     Dosage: UNK

REACTIONS (3)
  - DEPRESSION [None]
  - HYPOCALCAEMIA [None]
  - BLOOD PARATHYROID HORMONE INCREASED [None]
